FAERS Safety Report 9055466 (Version 1)
Quarter: 2013Q1

REPORT INFORMATION
  Report Type: Spontaneous
  Country: FR (occurrence: FR)
  Receive Date: 20130206
  Receipt Date: 20130206
  Transmission Date: 20140127
  Serious: Yes (Hospitalization)
  Sender: FDA-Public Use
  Company Number: FR-ASTRAZENECA-2013SE06838

PATIENT
  Age: 51 Year
  Sex: Female

DRUGS (8)
  1. DIPRIVAN [Suspect]
     Indication: INDUCTION AND MAINTENANCE OF ANAESTHESIA
     Route: 042
     Dates: start: 20110810, end: 20110810
  2. SUFENTANIL [Suspect]
     Indication: ANALGESIC THERAPY
     Route: 042
     Dates: start: 20110810, end: 20110810
  3. TRACRIUM [Suspect]
     Indication: INDUCTION OF ANAESTHESIA
     Route: 042
     Dates: start: 20110810, end: 20110810
  4. LYRICA [Concomitant]
  5. PROPRANOLOL [Concomitant]
  6. RIVOTRIL [Concomitant]
  7. ZYPREXA [Concomitant]
  8. CYMBALTA [Concomitant]

REACTIONS (2)
  - Shock [Recovered/Resolved]
  - Erythema [None]
